FAERS Safety Report 8846745 (Version 1)
Quarter: 2012Q4

REPORT INFORMATION
  Report Type: 
  Country: US (occurrence: US)
  Receive Date: 20121017
  Receipt Date: 20121017
  Transmission Date: 20130627
  Serious: Yes (Hospitalization, Other)
  Sender: FDA-Public Use
  Company Number: US-VERTEX PHARMACEUTICAL INC.-AE-2012-010794

PATIENT
  Sex: Female

DRUGS (11)
  1. INCIVEK [Suspect]
     Indication: HEPATITIS C
     Dosage: 750 mg, tid
     Route: 048
  2. RIBAVIRIN [Suspect]
     Indication: HEPATITIS C
     Dosage: 600 mg, bid
  3. PEGASYS [Suspect]
     Indication: HEPATITIS C
     Dosage: 180 ?g, UNK
     Route: 058
  4. KLONOPIN [Concomitant]
  5. CELEXA                             /00582602/ [Concomitant]
  6. OXYCODONE [Concomitant]
  7. SPIRIVA [Concomitant]
  8. SEROQUEL [Concomitant]
  9. ADDERALL [Concomitant]
  10. XANAX [Concomitant]
  11. PREVACID [Concomitant]

REACTIONS (3)
  - Renal failure acute [Recovered/Resolved]
  - Dehydration [Unknown]
  - Hypokalaemia [Unknown]
